FAERS Safety Report 9197672 (Version 2)
Quarter: 2013Q4

REPORT INFORMATION
  Report Type: Spontaneous
  Country: US (occurrence: US)
  Receive Date: 20130328
  Receipt Date: 20131219
  Transmission Date: 20140711
  Serious: Yes (Other)
  Sender: FDA-Public Use
  Company Number: US-BAYER-2013-037293

PATIENT
  Age: 37 Year
  Sex: Female

DRUGS (3)
  1. YASMIN [Suspect]
     Dosage: UNK
     Dates: start: 2006, end: 201002
  2. OCELLA [Suspect]
     Dosage: UNK
     Dates: start: 2006, end: 201002
  3. YAZ [Suspect]
     Dosage: UNK
     Dates: start: 2006, end: 201002

REACTIONS (4)
  - Cholelithiasis [None]
  - Pain [None]
  - Injury [None]
  - Cholecystitis chronic [None]
